FAERS Safety Report 14618819 (Version 1)
Quarter: 2018Q1

REPORT INFORMATION
  Report Type: Spontaneous
  Country: US (occurrence: US)
  Receive Date: 20180309
  Receipt Date: 20180309
  Transmission Date: 20180509
  Serious: No
  Sender: FDA-Public Use
  Company Number: US-LPDUSPRD-20171330

PATIENT
  Age: 64 Year
  Sex: Female
  Weight: 58.06 kg

DRUGS (4)
  1. WELLBUTRIN [Concomitant]
     Active Substance: BUPROPION HYDROCHLORIDE
     Dosage: UNKNOWN
     Route: 065
     Dates: start: 1999
  2. LUNESTA [Concomitant]
     Active Substance: ESZOPICLONE
     Dosage: UNKNOWN
     Route: 065
     Dates: start: 1999
  3. ESTRACE [Concomitant]
     Active Substance: ESTRADIOL
     Dosage: UNKNOWN
     Route: 065
     Dates: start: 1999
  4. ESTRADIOL VALERATE INJECTION, USP (0872-05) [Suspect]
     Active Substance: ESTRADIOL VALERATE
     Dosage: 20 MG, MONTHLY, INTRAMUSCULAR
     Route: 030
     Dates: start: 2013, end: 20170910

REACTIONS (4)
  - Injection site pain [Recovered/Resolved]
  - Injection site hypersensitivity [None]
  - Injection site inflammation [Recovering/Resolving]
  - Injection site erythema [Recovering/Resolving]

NARRATIVE: CASE EVENT DATE: 20170910
